FAERS Safety Report 7726377-7 (Version None)
Quarter: 2011Q3

REPORT INFORMATION
  Report Type: 
  Country: None (occurrence: None)
  Receive Date: 20110902
  Receipt Date: 20110824
  Transmission Date: 20111222
  Serious: Yes (Hospitalization, Other)
  Sender: FDA-Public Use
  Company Number: IR-MPIJNJ-2011-03581

PATIENT

DRUGS (2)
  1. VELCADE [Suspect]
     Route: 065
  2. VELCADE [Suspect]
     Indication: MULTIPLE MYELOMA
     Dosage: 1.7 MG, UNK
     Route: 065
     Dates: start: 20110201

REACTIONS (3)
  - MULTIPLE MYELOMA [None]
  - TUMOUR LYSIS SYNDROME [None]
  - RED BLOOD CELL SEDIMENTATION RATE INCREASED [None]
